FAERS Safety Report 5398226-6 (Version None)
Quarter: 2007Q3

REPORT INFORMATION
  Report Type: 
  Country: None (occurrence: None)
  Receive Date: 20070726
  Receipt Date: 20070719
  Transmission Date: 20080115
  Serious: Yes (Other)
  Sender: FDA-Public Use
  Company Number: US-ROXANE LABORATORIES, INC-2007-BP-17067RO

PATIENT
  Sex: Male
  Weight: 132 kg

DRUGS (6)
  1. PREDNISONE TABLETS USP, 20MG [Suspect]
     Indication: RHEUMATOID ARTHRITIS
     Dosage: 2 MG DAILY
     Route: 048
     Dates: end: 20050701
  2. MEDROL [Suspect]
     Indication: RHEUMATOID ARTHRITIS
     Dosage: DOSE PACK
     Route: 048
     Dates: start: 20010101, end: 20010201
  3. PREDNISONE TAB [Suspect]
     Indication: RHEUMATOID ARTHRITIS
     Dosage: 20 MG DAILY
     Route: 048
     Dates: start: 20010201, end: 20021101
  4. PREDNISONE TAB [Suspect]
     Dosage: 15 MG DAILY
     Route: 048
     Dates: start: 20020101, end: 20020101
  5. PREDNISONE TAB [Suspect]
     Dosage: 10 MG DAILY
     Route: 048
     Dates: start: 20020101, end: 20050201
  6. INSULIN [Concomitant]
     Indication: DIABETES MELLITUS
     Route: 058

REACTIONS (3)
  - CATARACT SUBCAPSULAR [None]
  - VISUAL ACUITY REDUCED [None]
  - WEIGHT INCREASED [None]
